FAERS Safety Report 6860155-6 (Version None)
Quarter: 2010Q3

REPORT INFORMATION
  Report Type: 
  Country: None (occurrence: None)
  Receive Date: 20100720
  Receipt Date: 20100706
  Transmission Date: 20110219
  Serious: Yes (Hospitalization)
  Sender: FDA-Public Use
  Company Number: US-ELI_LILLY_AND_COMPANY-US201004007113

PATIENT
  Sex: Male

DRUGS (14)
  1. FORTEO [Suspect]
     Indication: BONE DENSITY DECREASED
     Dosage: 1 D/F, EACH EVENING
     Dates: start: 20090601, end: 20100301
  2. FORTEO [Suspect]
     Dosage: 1 D/F, EACH EVENING
     Dates: start: 20100321
  3. COREG [Concomitant]
     Dosage: 25 MG, UNKNOWN
  4. EXFORGE                            /01634301/ [Concomitant]
     Dosage: 10-325 MG, UNKNOWN
  5. METFORMIN HCL [Concomitant]
     Dosage: 500 MG, UNKNOWN
  6. FLOMAX [Concomitant]
     Dosage: 0.4 MG, UNKNOWN
  7. GLIMEPIRIDE [Concomitant]
     Dosage: 2 MG, UNKNOWN
  8. LORA TAB [Concomitant]
     Dosage: 7.5 D/F, UNKNOWN
  9. POTASSIUM CHLORIDE [Concomitant]
     Dosage: 10 MEQ, UNKNOWN
  10. ZESTRIL [Concomitant]
     Dosage: 40 MG, UNKNOWN
  11. PROSCAR [Concomitant]
     Dosage: 40 MG, UNKNOWN
  12. ZOCOR [Concomitant]
     Dosage: 40 MG, UNKNOWN
  13. CLONIDINE [Concomitant]
     Dosage: 0.2 MG, UNKNOWN
  14. MULTI-VITAMIN [Concomitant]

REACTIONS (4)
  - ABDOMINAL PAIN UPPER [None]
  - DIARRHOEA [None]
  - HIP ARTHROPLASTY [None]
  - INJECTION SITE PAIN [None]
